FAERS Safety Report 5120016-X (Version None)
Quarter: 2006Q3

REPORT INFORMATION
  Report Type: 
  Country: None (occurrence: None)
  Receive Date: 20060929
  Receipt Date: 20060919
  Transmission Date: 20061208
  Serious: Yes (Death, Life-Threatening)
  Sender: FDA-Public Use
  Company Number: 2006JP002835

PATIENT
  Age: 45 Year
  Sex: Male
  Weight: 110 kg

DRUGS (20)
  1. FUNGUARD(MICAFUNGIN) INJECTION [Suspect]
     Indication: FUNGAEMIA
     Dosage: 75 MG, UID/QD, IV DRIP
     Route: 041
     Dates: start: 20060720, end: 20060727
  2. CEFTRIAXONE MERCK [Concomitant]
  3. ATARAX [Concomitant]
  4. ESPO (EPOETIN ALFA) [Concomitant]
  5. MEDROL ACETATE [Concomitant]
  6. CLINORIL [Concomitant]
  7. ASPIRIN [Concomitant]
  8. EPADEL (ETHYL ICOSAPENTATE) [Concomitant]
  9. RABEPRAZOLE SODIUM [Concomitant]
  10. DIOVAN [Concomitant]
  11. ALFAROL (ALFACALCIDOL) [Concomitant]
  12. ZYLORIC [Concomitant]
  13. LASIX [Concomitant]
  14. SODIUM BICARBONATE [Concomitant]
  15. CALCIUM CARBONATE [Concomitant]
  16. ARGAMATE (CALCIUM POLYSTYRENE SULFONATE) [Concomitant]
  17. CHARCOAL PREPARATIONS [Concomitant]
  18. BISOLVON (BROMHEXINE HYDROCHLORIDE) [Concomitant]
  19. LORFENAMIN (LOXOPROFEN SODIUM) [Concomitant]
  20. TARGOCID [Concomitant]

REACTIONS (5)
  - BACTERAEMIA [None]
  - CARDIAC FAILURE [None]
  - DISSEMINATED INTRAVASCULAR COAGULATION [None]
  - HEPATORENAL SYNDROME [None]
  - RENAL FAILURE CHRONIC [None]
